FAERS Safety Report 18272801 (Version 1)
Quarter: 2020Q3

REPORT INFORMATION
  Report Type: Spontaneous
  Country: US (occurrence: US)
  Receive Date: 20200916
  Receipt Date: 20200916
  Transmission Date: 20201103
  Serious: Yes (Other)
  Sender: FDA-Public Use
  Company Number: None

PATIENT
  Age: 72 Year
  Sex: Male

DRUGS (8)
  1. DILTIAZEM 240 MG [Concomitant]
     Dates: start: 20200113
  2. METOPROLOL ER 100MG [Concomitant]
     Dates: start: 20200113
  3. SEROQUEL [Concomitant]
     Active Substance: QUETIAPINE FUMARATE
     Dates: start: 20200113
  4. OMEPRAZOLE 20MG [Concomitant]
     Active Substance: OMEPRAZOLE
     Dates: start: 20200113
  5. TAMSULOSIN 0.4MG [Concomitant]
     Active Substance: TAMSULOSIN
     Dates: start: 20200113
  6. ROSUVASTATIN 40MG [Concomitant]
     Active Substance: ROSUVASTATIN
     Dates: start: 20200113
  7. ELIQUIS [Concomitant]
     Active Substance: APIXABAN
     Dates: start: 20200113
  8. XELODA [Suspect]
     Active Substance: CAPECITABINE
     Indication: PROSTATE CANCER
     Route: 048
     Dates: start: 20200113, end: 20200914

REACTIONS (1)
  - Hand-foot-and-mouth disease [None]

NARRATIVE: CASE EVENT DATE: 20200916
